FAERS Safety Report 20302333 (Version 2)
Quarter: 2022Q3

REPORT INFORMATION
  Report Type: Spontaneous
  Country: US (occurrence: US)
  Receive Date: 20220106
  Receipt Date: 20220708
  Transmission Date: 20221027
  Serious: No
  Sender: FDA-Public Use
  Company Number: US-AMGEN-USASP2021208277

PATIENT
  Age: 5 Year
  Sex: Male

DRUGS (6)
  1. INFLIXIMAB [Suspect]
     Active Substance: INFLIXIMAB
     Indication: Crohn^s disease
     Dosage: UNK
     Route: 065
  2. INFLIXIMAB [Suspect]
     Active Substance: INFLIXIMAB
     Indication: Chronic recurrent multifocal osteomyelitis
  3. INFLIXIMAB [Suspect]
     Active Substance: INFLIXIMAB
     Indication: Off label use
  4. METHYLPREDNISOLONE [Concomitant]
     Active Substance: METHYLPREDNISOLONE
     Indication: Crohn^s disease
  5. METHYLPREDNISOLONE [Concomitant]
     Active Substance: METHYLPREDNISOLONE
     Indication: Chronic recurrent multifocal osteomyelitis
  6. METHYLPREDNISOLONE [Concomitant]
     Active Substance: METHYLPREDNISOLONE
     Indication: Off label use

REACTIONS (1)
  - Off label use [Unknown]
